FAERS Safety Report 4901399-X (Version None)
Quarter: 2006Q1

REPORT INFORMATION
  Report Type: 
  Country: None (occurrence: None)
  Receive Date: 20060202
  Receipt Date: 20060202
  Transmission Date: 20060701
  Serious: Yes (Hospitalization)
  Sender: FDA-Public Use
  Company Number: None

PATIENT
  Sex: Female

DRUGS (2)
  1. LYRICA [Suspect]
     Indication: OSTEOARTHRITIS
     Dosage: 50MG  TID  PO
     Route: 048
     Dates: start: 20050926, end: 20051028
  2. ETODOLAC [Concomitant]

REACTIONS (8)
  - FALL [None]
  - GENERAL PHYSICAL HEALTH DETERIORATION [None]
  - HALLUCINATION, VISUAL [None]
  - INSOMNIA [None]
  - MENTAL STATUS CHANGES [None]
  - PARANOIA [None]
  - RESTLESSNESS [None]
  - TREMOR [None]
